FAERS Safety Report 10085584 (Version 2)
Quarter: 2014Q2

REPORT INFORMATION
  Report Type: Spontaneous
  Country: CA (occurrence: CA)
  Receive Date: 20140418
  Receipt Date: 20140520
  Transmission Date: 20141212
  Serious: Yes (Other)
  Sender: FDA-Public Use
  Company Number: CA-AMGEN-CANSP2014027803

PATIENT
  Age: 49 Year
  Sex: Female

DRUGS (6)
  1. ENBREL [Suspect]
     Indication: PSORIATIC ARTHROPATHY
     Dosage: 50 MG, 2 TIMES/WK
     Route: 058
     Dates: start: 20140401, end: 20140421
  2. AMLODIPINE [Concomitant]
     Dosage: 10 MG, QD
     Route: 048
  3. CELEBREX [Concomitant]
     Dosage: 100 MG, QD
     Route: 048
  4. MORPHINE [Concomitant]
     Dosage: 60 MG, BID
     Route: 048
  5. RABEPRAZOLE [Concomitant]
     Dosage: 20 MG, QD
     Route: 048
  6. LORAZEPAM [Concomitant]
     Dosage: 1 MG, QD
     Route: 048

REACTIONS (8)
  - Dermatitis [Recovering/Resolving]
  - Hyperhidrosis [Recovering/Resolving]
  - Cold sweat [Recovering/Resolving]
  - Tenderness [Unknown]
  - Melanocytic naevus [Unknown]
  - Injection site reaction [Recovering/Resolving]
  - Injection site pain [Recovering/Resolving]
  - Injection site erythema [Not Recovered/Not Resolved]
